FAERS Safety Report 4343199-8 (Version None)
Quarter: 2004Q1

REPORT INFORMATION
  Report Type: 
  Country: None (occurrence: None)
  Receive Date: 20040325
  Receipt Date: 20040119
  Transmission Date: 20041129
  Serious: No
  Sender: FDA-Public Use
  Company Number: USA040156854

PATIENT
  Age: 80 Year
  Sex: Female

DRUGS (9)
  1. FORTEO [Suspect]
     Indication: OSTEOPOROSIS
     Dates: start: 20030901
  2. CALCIUM [Concomitant]
  3. AVALIDE [Concomitant]
  4. TIAZAC [Concomitant]
  5. BEXTRA [Concomitant]
  6. ACIPHEX [Concomitant]
  7. DITROPAN [Concomitant]
  8. VITAMIN [Concomitant]
  9. GLUCOSAMINE [Concomitant]

REACTIONS (7)
  - ANXIETY [None]
  - ARTHRITIS [None]
  - ASTHENIA [None]
  - DIZZINESS [None]
  - FEELING ABNORMAL [None]
  - NASOPHARYNGITIS [None]
  - TREMOR [None]
